FAERS Safety Report 20491241 (Version 1)
Quarter: 2022Q1

REPORT INFORMATION
  Report Type: Report from Study
  Country: US (occurrence: US)
  Receive Date: 20220218
  Receipt Date: 20220218
  Transmission Date: 20220423
  Serious: No
  Sender: FDA-Public Use
  Company Number: US-MIRM-000253

PATIENT
  Age: 6 Year
  Sex: Female
  Weight: 16.329 kg

DRUGS (9)
  1. LIVMARLI [Suspect]
     Active Substance: MARALIXIBAT CHLORIDE
     Indication: Cholestatic pruritus
     Route: 048
     Dates: start: 20210916
  2. LIVMARLI [Suspect]
     Active Substance: MARALIXIBAT CHLORIDE
     Indication: Cholestatic pruritus
     Route: 048
     Dates: start: 20210909, end: 20210915
  3. 1328139 (GLOBALC3Sep19): rifampin [Concomitant]
     Indication: Product used for unknown indication
     Route: 048
  4. 1325596 (GLOBALC3Sep19): Cortisone cream [Concomitant]
     Indication: Product used for unknown indication
     Dosage: TIME INTERVAL: AS NECESSARY
     Route: 061
  5. 1328777 (GLOBALC3Sep19): ursodiol [Concomitant]
     Indication: Product used for unknown indication
     Route: 048
  6. 2788051 (GLOBALC3Sep19): naltrexone [Concomitant]
     Indication: Product used for unknown indication
     Route: 048
  7. 2930040 (GLOBALC3Sep19): Hydroxyzine [Concomitant]
     Indication: Product used for unknown indication
     Route: 048
  8. 1259193 (GLOBALC3Sep19): Benadryl [Concomitant]
     Indication: Product used for unknown indication
     Route: 048
  9. 3354409 (GLOBALC3Sep19): Eucerin healing ointment [Concomitant]
     Indication: Product used for unknown indication
     Dosage: TIME INTERVAL: AS NECESSARY
     Route: 061

REACTIONS (1)
  - Pruritus [Recovered/Resolved]

NARRATIVE: CASE EVENT DATE: 20211215
